FAERS Safety Report 8888339 (Version 1)
Quarter: 2012Q4

REPORT INFORMATION
  Report Type: 
  Country: CH (occurrence: CH)
  Receive Date: 20121106
  Receipt Date: 20121106
  Transmission Date: 20130627
  Serious: Yes (Other)
  Sender: FDA-Public Use
  Company Number: CH-JNJFOC-20121013653

PATIENT
  Age: 26 Year
  Sex: Male

DRUGS (5)
  1. HALDOL [Suspect]
     Indication: PRODUCT USED FOR UNKNOWN INDICATION
     Route: 048
  2. ZYPREXA [Suspect]
     Indication: PRODUCT USED FOR UNKNOWN INDICATION
     Route: 048
     Dates: start: 20120924, end: 2012
  3. LITHIUM CARBONATE [Suspect]
     Indication: PRODUCT USED FOR UNKNOWN INDICATION
     Route: 048
     Dates: start: 20120924, end: 2012
  4. ORFIRIL [Concomitant]
     Route: 048
     Dates: start: 20120924, end: 2012
  5. VALIUM [Concomitant]
     Route: 048
     Dates: start: 20120924, end: 2012

REACTIONS (6)
  - Neuroleptic malignant syndrome [Recovering/Resolving]
  - Dystonia [Unknown]
  - Dysphagia [Unknown]
  - Pyrexia [Unknown]
  - Chills [Unknown]
  - Gaze palsy [Recovering/Resolving]
